FAERS Safety Report 5947851-X (Version None)
Quarter: 2008Q4

REPORT INFORMATION
  Report Type: 
  Country: None (occurrence: None)
  Receive Date: 20081110
  Receipt Date: 20081110
  Transmission Date: 20090506
  Serious: Yes (Death)
  Sender: FDA-Public Use
  Company Number: None

PATIENT
  Sex: Male
  Weight: 99 kg

DRUGS (3)
  1. IRINOTECAN HYDROCHLORIDE [Suspect]
     Indication: GLIOBLASTOMA MULTIFORME
     Dosage: 125MG/M2, 80MG/M2 DAY 1, 8 IV
     Route: 042
     Dates: start: 20070719
  2. IRINOTECAN HYDROCHLORIDE [Suspect]
     Indication: GLIOBLASTOMA MULTIFORME
     Dosage: 125MG/M2, 80MG/M2 DAY 1, 8 IV
     Route: 042
     Dates: start: 20070726
  3. TEMODAR [Suspect]
     Indication: GLIOBLASTOMA MULTIFORME
     Dosage: 200MG/M2  DAYS 1-5 PO
     Route: 048
     Dates: start: 20070719, end: 20070723

REACTIONS (5)
  - ASTHENIA [None]
  - HYPOTENSION [None]
  - RENAL FAILURE ACUTE [None]
  - SEPSIS [None]
  - TACHYCARDIA [None]
